FAERS Safety Report 13422468 (Version 1)
Quarter: 2017Q2

REPORT INFORMATION
  Report Type: Spontaneous
  Country: US (occurrence: US)
  Receive Date: 20170409
  Receipt Date: 20170409
  Transmission Date: 20170830
  Serious: Yes (Disabling)
  Sender: FDA-Public Use
  Company Number: None

PATIENT
  Age: 64 Year
  Sex: Female
  Weight: 122.4 kg

DRUGS (14)
  1. RAMIPRIL. [Concomitant]
     Active Substance: RAMIPRIL
  2. BUPROPION. [Concomitant]
     Active Substance: BUPROPION
  3. METFORMIN [Concomitant]
     Active Substance: METFORMIN HYDROCHLORIDE
  4. ATORVASTIN [Concomitant]
     Active Substance: ATORVASTATIN
  5. NABUMETONE. [Concomitant]
     Active Substance: NABUMETONE
  6. VITAMIN D3 [Concomitant]
     Active Substance: CHOLECALCIFEROL
  7. ALBUTEROL INHALER [Concomitant]
     Active Substance: ALBUTEROL
  8. BISOPROLOL-HYDROCHOLOROTHIAZIDE [Concomitant]
  9. PAROXETINE. [Concomitant]
     Active Substance: PAROXETINE
  10. MITIGARE [Suspect]
     Active Substance: COLCHICINE
     Indication: GOUT
     Dosage: ?          QUANTITY:3 CAPSULE(S);?
     Route: 048
     Dates: start: 20170407, end: 20170407
  11. DOXYCYCLINE. [Concomitant]
     Active Substance: DOXYCYCLINE
  12. ARMOUR THYROID [Concomitant]
     Active Substance: THYROID, PORCINE
  13. OXYBUTYNIN [Concomitant]
     Active Substance: OXYBUTYNIN
  14. MONTELUKAST [Concomitant]
     Active Substance: MONTELUKAST SODIUM

REACTIONS (5)
  - Product substitution issue [None]
  - Prescribed overdose [None]
  - Blood pressure systolic increased [None]
  - Nausea [None]
  - Abdominal pain [None]

NARRATIVE: CASE EVENT DATE: 20170407
